FAERS Safety Report 21957522 (Version 6)
Quarter: 2023Q1

REPORT INFORMATION
  Report Type: Report from Study
  Country: US (occurrence: US)
  Receive Date: 20230206
  Receipt Date: 20230306
  Transmission Date: 20230418
  Serious: No
  Sender: FDA-Public Use
  Company Number: US-002147023-NVSC2023US023537

PATIENT
  Age: 64 Year
  Sex: Male
  Weight: 78.458 kg

DRUGS (3)
  1. TREPROSTINIL [Suspect]
     Active Substance: TREPROSTINIL
     Indication: Pulmonary arterial hypertension
     Dosage: 40 NG/KG/ MIN (CONT)
     Route: 042
     Dates: start: 20230109
  2. TREPROSTINIL [Suspect]
     Active Substance: TREPROSTINIL
     Dosage: UNK, CONT
     Route: 042
     Dates: start: 20230128
  3. REMODULIN [Suspect]
     Active Substance: TREPROSTINIL
     Indication: Pulmonary arterial hypertension
     Dosage: 0.040 ?G/KG, CONT
     Route: 042
     Dates: start: 20210714, end: 20230128

REACTIONS (4)
  - Cough [Recovering/Resolving]
  - Diarrhoea [Recovered/Resolved]
  - Drug intolerance [Unknown]
  - Adverse event [Unknown]

NARRATIVE: CASE EVENT DATE: 20230128
